FAERS Safety Report 13587527 (Version 1)
Quarter: 2017Q2

REPORT INFORMATION
  Report Type: Spontaneous
  Country: US (occurrence: US)
  Receive Date: 20170526
  Receipt Date: 20170526
  Transmission Date: 20170830
  Serious: Yes (Hospitalization)
  Sender: FDA-Public Use
  Company Number: None

PATIENT
  Age: 61 Year
  Sex: Male
  Weight: 134 kg

DRUGS (2)
  1. IPILIMUMAB [Suspect]
     Active Substance: IPILIMUMAB
     Indication: MALIGNANT MELANOMA
     Dosage: 475 MG INTRAVENOUS BOLUS Q21 DAYS
     Route: 040
     Dates: start: 20170216, end: 20170420
  2. NIVOLUMAB [Suspect]
     Active Substance: NIVOLUMAB
     Indication: MALIGNANT MELANOMA
     Dosage: 160 MG INTRAVENOUS BOLUS Q21 DAYS?
     Route: 040
     Dates: start: 20170216, end: 20170420

REACTIONS (2)
  - Colitis [None]
  - Acute kidney injury [None]

NARRATIVE: CASE EVENT DATE: 20170522
